FAERS Safety Report 5745059-4 (Version None)
Quarter: 2008Q2

REPORT INFORMATION
  Report Type: 
  Country: None (occurrence: None)
  Receive Date: 20080521
  Receipt Date: 20080509
  Transmission Date: 20081010
  Serious: Yes (Death, Hospitalization)
  Sender: FDA-Public Use
  Company Number: US-ROCHE-563728

PATIENT
  Age: 73 Year
  Sex: Male

DRUGS (1)
  1. BONIVA [Suspect]
     Indication: DRUG USE FOR UNKNOWN INDICATION
     Dosage: IT WAS REPORTED THAT THE PATIENT RECEIVED SECOND DOSE IN AUGUST 2005
     Route: 065

REACTIONS (12)
  - ACUTE LEUKAEMIA [None]
  - ARTHRALGIA [None]
  - CHEST PAIN [None]
  - DYSPEPSIA [None]
  - DYSPHAGIA [None]
  - INSOMNIA [None]
  - MYALGIA [None]
  - ORAL HERPES [None]
  - ORAL INTAKE REDUCED [None]
  - PAIN [None]
  - STOMACH DISCOMFORT [None]
  - UNEVALUABLE EVENT [None]
